FAERS Safety Report 5239560-X (Version None)
Quarter: 2007Q1

REPORT INFORMATION
  Report Type: 
  Country: None (occurrence: None)
  Receive Date: 20070216
  Receipt Date: 20070207
  Transmission Date: 20070707
  Serious: Yes (Other)
  Sender: FDA-Public Use
  Company Number: US-JNJFOC-20050701286

PATIENT
  Sex: Female
  Weight: 51.26 kg

DRUGS (10)
  1. REMICADE [Suspect]
     Indication: RHEUMATOID ARTHRITIS
  2. MEDROL [Concomitant]
  3. PLAQUINAL [Concomitant]
  4. IMURAN [Concomitant]
  5. DILAUDID [Concomitant]
  6. NEXIUM [Concomitant]
  7. ZELNORM [Concomitant]
  8. LEVBID [Concomitant]
  9. VERAPAMIL [Concomitant]
  10. DIFLUCAN [Concomitant]

REACTIONS (3)
  - MYCOBACTERIUM CHELONEI INFECTION [None]
  - RESPIRATORY TRACT INFECTION FUNGAL [None]
  - SUBCUTANEOUS ABSCESS [None]
